FAERS Safety Report 5664500-9 (Version None)
Quarter: 2008Q1

REPORT INFORMATION
  Report Type: 
  Country: None (occurrence: None)
  Receive Date: 20080314
  Receipt Date: 20080307
  Transmission Date: 20080703
  Serious: Yes (Other)
  Sender: FDA-Public Use
  Company Number: B0511267A

PATIENT
  Sex: Female

DRUGS (6)
  1. DIGOXIN [Suspect]
     Indication: DRUG USE FOR UNKNOWN INDICATION
     Dosage: 62.5MCG PER DAY
     Route: 048
  2. FELODIPINE [Concomitant]
  3. ACETAMINOPHEN [Concomitant]
  4. BENDROFLUMETHIAZIDE [Concomitant]
  5. TRAMADOL HCL [Concomitant]
  6. ENALAPRIL MALEATE [Concomitant]

REACTIONS (1)
  - CARDIOACTIVE DRUG LEVEL INCREASED [None]
